FAERS Safety Report 14280542 (Version 2)
Quarter: 2018Q1

REPORT INFORMATION
  Report Type: Spontaneous
  Country: US (occurrence: US)
  Receive Date: 20171212
  Receipt Date: 20180314
  Transmission Date: 20180508
  Serious: No
  Sender: FDA-Public Use
  Company Number: US-BIOGEN-2017BI00472942

PATIENT
  Sex: Female

DRUGS (6)
  1. TECFIDERA [Suspect]
     Active Substance: DIMETHYL FUMARATE
     Dosage: FOURTH WEEK?MAINTENANCE DOSE
     Route: 048
     Dates: start: 20170929
  2. TECFIDERA [Suspect]
     Active Substance: DIMETHYL FUMARATE
     Indication: MULTIPLE SCLEROSIS
     Dosage: INITIAL DOSE
     Route: 065
  3. TECFIDERA [Suspect]
     Active Substance: DIMETHYL FUMARATE
     Dosage: MAINTENANCE DOSE
     Route: 048
     Dates: start: 20170912
  4. TECFIDERA [Suspect]
     Active Substance: DIMETHYL FUMARATE
     Dosage: AM?SECOND AND THIRD WEEK
     Route: 048
     Dates: start: 20170915, end: 20170928
  5. TECFIDERA [Suspect]
     Active Substance: DIMETHYL FUMARATE
     Dosage: PM?SECOND AND THIRD WEEK
     Route: 048
     Dates: start: 20170915, end: 20170928
  6. TECFIDERA [Suspect]
     Active Substance: DIMETHYL FUMARATE
     Dosage: FOR 7 DAYS
     Route: 048
     Dates: start: 20170905, end: 20170911

REACTIONS (5)
  - Alopecia [Unknown]
  - Acne [Unknown]
  - Flushing [Unknown]
  - Pruritus [Unknown]
  - Prescribed underdose [Unknown]
